FAERS Safety Report 5424677-7 (Version None)
Quarter: 2007Q3

REPORT INFORMATION
  Report Type: 
  Country: None (occurrence: None)
  Receive Date: 20070824
  Receipt Date: 20070816
  Transmission Date: 20080115
  Serious: Yes (Other)
  Sender: FDA-Public Use
  Company Number: PHBS2007BR13727

PATIENT
  Sex: Female

DRUGS (4)
  1. DESERILA [Suspect]
     Indication: HEADACHE
     Dosage: 1 MG, BID
     Route: 048
  2. DESERILA [Suspect]
     Dosage: 1 MG, TID
     Route: 048
     Dates: start: 20070201
  3. DEPAKOTE [Concomitant]
     Indication: HEADACHE
     Dosage: 500 MG/D
     Route: 048
  4. DEPAKOTE [Concomitant]
     Dosage: 500 MG, BID
     Route: 048

REACTIONS (4)
  - ASTHENIA [None]
  - HEAD DISCOMFORT [None]
  - HEADACHE [None]
  - HYPERTENSION [None]
